FAERS Safety Report 10447108 (Version 2)
Quarter: 2014Q3

REPORT INFORMATION
  Report Type: Report from Study
  Country: BR (occurrence: BR)
  Receive Date: 20140911
  Receipt Date: 20140925
  Transmission Date: 20150326
  Serious: Yes (Other)
  Sender: FDA-Public Use
  Company Number: PHHY2014BR112635

PATIENT
  Sex: Male
  Weight: 92 kg

DRUGS (13)
  1. ASPIRINA BAYER [Suspect]
     Active Substance: ASPIRIN
     Indication: ANTICOAGULANT THERAPY
     Dosage: 1 DF, DAILY
     Route: 048
     Dates: start: 2008
  2. SELOZOK [Suspect]
     Active Substance: METOPROLOL SUCCINATE
     Indication: CARDIAC DISORDER
     Dosage: UNK UKN, UNK
     Route: 048
     Dates: start: 2008
  3. CLOPIDOGREL SANDOZ//CLOPIDOGREL [Concomitant]
     Indication: CARDIAC DISORDER
     Dosage: UNK UKN, UNK
     Dates: start: 2002
  4. DIOVAN HCT [Suspect]
     Active Substance: HYDROCHLOROTHIAZIDE\VALSARTAN
     Indication: CARDIAC DISORDER
     Dosage: 1 DF, DAILY (VALS 320 MG, HCTZ 12.5 MG)
     Route: 048
     Dates: end: 20140903
  5. PANTOPRAZOLE PHR LAB [Concomitant]
     Indication: ABDOMINAL DISCOMFORT
     Dosage: UNK UKN, UNK
  6. CLOPIDOGREL SANDOZ//CLOPIDOGREL [Concomitant]
     Indication: ANTICOAGULANT THERAPY
  7. DIOVAN [Suspect]
     Active Substance: VALSARTAN
     Dosage: 1 DF, UNK (320 MG)
  8. MONOCORDIL [Suspect]
     Active Substance: ISOSORBIDE MONONITRATE
     Indication: CARDIAC DISORDER
     Dosage: 2 DF, DAILY
     Route: 048
     Dates: start: 2012
  9. DIOVAN HCT [Suspect]
     Active Substance: HYDROCHLOROTHIAZIDE\VALSARTAN
     Dosage: UNK UKN, UNK
  10. ROSUVASTATIN [Suspect]
     Active Substance: ROSUVASTATIN
     Indication: BLOOD CHOLESTEROL ABNORMAL
     Dosage: 1 DF, DAILY
     Route: 048
  11. DIOVAN [Suspect]
     Active Substance: VALSARTAN
     Dosage: 1 DF, UNK (320 MG)
     Route: 048
  12. PURAN [Suspect]
     Active Substance: LEVOTHYROXINE SODIUM
     Indication: THYROID DISORDER
     Dosage: 1 DF, DAILY
     Route: 048
     Dates: start: 2008
  13. DIOVAN [Suspect]
     Active Substance: VALSARTAN
     Indication: CARDIAC DISORDER
     Dosage: 1 DF, DAILY (160 MG)
     Route: 048

REACTIONS (4)
  - Blood potassium abnormal [Unknown]
  - Cataract [Not Recovered/Not Resolved]
  - Renal neoplasm [Unknown]
  - Vision blurred [Not Recovered/Not Resolved]
